FAERS Safety Report 7436146-3 (Version None)
Quarter: 2011Q2

REPORT INFORMATION
  Report Type: 
  Country: None (occurrence: None)
  Receive Date: 20110425
  Receipt Date: 20110411
  Transmission Date: 20111010
  Serious: Yes (Hospitalization, Other)
  Sender: FDA-Public Use
  Company Number: JP-BAYER-2011-025520

PATIENT
  Age: 73 Year
  Sex: Male
  Weight: 64 kg

DRUGS (8)
  1. URALYT [Concomitant]
     Route: 048
  2. ZANTAC [Concomitant]
     Route: 065
  3. OLMETEC [Concomitant]
     Route: 048
  4. SIGMART [Concomitant]
     Route: 065
  5. ALLOPURINOL [Concomitant]
     Route: 048
  6. OMEPRAZOLE [Concomitant]
     Route: 048
  7. NORVASC [Concomitant]
     Route: 048
  8. ASPIRIN [Suspect]
     Indication: ANGINA PECTORIS
     Dosage: UNK
     Route: 048

REACTIONS (4)
  - ILEAL ULCER [None]
  - DIARRHOEA [None]
  - ILEAL STENOSIS [None]
  - ABDOMINAL PAIN [None]
